FAERS Safety Report 10625191 (Version 2)
Quarter: 2014Q4

REPORT INFORMATION
  Report Type: Spontaneous
  Country: US (occurrence: None)
  Receive Date: 20141201
  Receipt Date: 20141231
  Transmission Date: 20150529
  Serious: Yes (Death, Other)
  Sender: FDA-Public Use
  Company Number: US-MDCO-14-00301

PATIENT
  Age: 62 Year
  Sex: Male
  Weight: 78.74 kg

DRUGS (54)
  1. SALINE FLUSH [Concomitant]
     Active Substance: SODIUM CHLORIDE
  2. DEXTROSE (GLUCOSE) [Concomitant]
     Active Substance: DEXTROSE
  3. EPINEPHRINE BASE [Concomitant]
  4. BUMEX (BUMETANIDE) [Concomitant]
  5. LEVEMIR [Concomitant]
     Active Substance: INSULIN DETEMIR
  6. VERSED (MIDAZOLAM HYDROCHLORIDE) (INJECTION) [Concomitant]
  7. LOPRESSOR [Concomitant]
     Active Substance: METOPROLOL TARTRATE
  8. CALCIUM CHLORIDE. [Concomitant]
     Active Substance: CALCIUM CHLORIDE
  9. TYLENOL-CODEINE [Concomitant]
  10. ALBUMINAR-5 [Concomitant]
     Active Substance: ALBUMIN (HUMAN)
  11. ATROPINE [Concomitant]
     Active Substance: ATROPINE
  12. APRESOLINE HYDROCHLORIDE [Concomitant]
     Active Substance: HYDRALAZINE HYDROCHLORIDE
  13. MAGNESIUM [Concomitant]
     Active Substance: MAGNESIUM
  14. NEO-SYNEPHRINE [Concomitant]
     Active Substance: PHENYLEPHRINE HYDROCHLORIDE
  15. RESTORIL (TEMAZEPAM) [Concomitant]
  16. ZANTAC [Concomitant]
     Active Substance: RANITIDINE HYDROCHLORIDE
  17. ANCEF (CEFAZOLIN SODIUM) [Concomitant]
  18. CORDARONE (AMIODARONE HYDROCHLORIDE) [Concomitant]
  19. FENTANYL CITRATE. [Concomitant]
     Active Substance: FENTANYL CITRATE
  20. TORADOL [Concomitant]
     Active Substance: KETOROLAC TROMETHAMINE
  21. MORPHINE [Concomitant]
     Active Substance: MORPHINE
  22. MAXIPIME [Concomitant]
     Active Substance: CEFEPIME HYDROCHLORIDE
  23. VANCOMYCIN [Concomitant]
     Active Substance: VANCOMYCIN
  24. ATIVAN [Concomitant]
     Active Substance: LORAZEPAM
  25. LIDOCAINE. [Concomitant]
     Active Substance: LIDOCAINE
  26. TYLENOL [Concomitant]
     Active Substance: ACETAMINOPHEN
  27. REGLAN (METOCLOPRAMIDE HYDROCHLORIDE) [Concomitant]
  28. ATROVENT NEB SOLN [Concomitant]
  29. LOVENOX [Concomitant]
     Active Substance: ENOXAPARIN SODIUM
  30. ASPIRIN. [Concomitant]
     Active Substance: ASPIRIN
  31. BENADRYL [Concomitant]
     Active Substance: DIPHENHYDRAMINE HYDROCHLORIDE
  32. NITROSTAT [Concomitant]
     Active Substance: NITROGLYCERIN
  33. CALCIUM GLUCONATE. [Concomitant]
     Active Substance: CALCIUM GLUCONATE
  34. PERCOCET [Concomitant]
     Active Substance: ACETAMINOPHEN\OXYCODONE HYDROCHLORIDE
  35. SODIUM BICARBONATE. [Concomitant]
     Active Substance: SODIUM BICARBONATE
  36. LASIX [Concomitant]
     Active Substance: FUROSEMIDE
  37. PRECEDEX [Concomitant]
     Active Substance: DEXMEDETOMIDINE HYDROCHLORIDE
  38. DOBUTREX [Concomitant]
     Active Substance: DOBUTAMINE HYDROCHLORIDE
  39. DEMEROL (PETHIDINE HYDROCHLORIDE) [Concomitant]
  40. XOPENEX (LEVOSALBUTAMOL HYDROCHLROIDE) [Concomitant]
  41. ZESTRIL [Concomitant]
     Active Substance: LISINOPRIL
  42. ZOCOR [Concomitant]
     Active Substance: SIMVASTATIN
  43. MILRINONE [Concomitant]
     Active Substance: MILRINONE
  44. DIPRIVAN [Concomitant]
     Active Substance: PROPOFOL
  45. MYLANTA [Concomitant]
     Active Substance: ALUMINUM HYDROXIDE\MAGNESIUM HYDROXIDE\SIMETHICONE
  46. NOVOLOG [Concomitant]
     Active Substance: INSULIN ASPART
  47. ANGIOMAX [Suspect]
     Active Substance: BIVALIRUDIN
     Indication: CATHETERISATION CARDIAC
     Dosage: NOT OTHERWISE SPECIFIED
     Route: 041
     Dates: start: 20141028, end: 20141028
  48. SODIUM CHLORIDE. [Concomitant]
     Active Substance: SODIUM CHLORIDE
  49. ZOFRAN SDV [Concomitant]
  50. VITAMIN [Concomitant]
     Active Substance: VITAMINS
  51. CARDOZE (DILTIAZEM) [Concomitant]
  52. OFIRMEV (PARACETAMOL) [Concomitant]
  53. POTASSIUM CHLORIDE. [Concomitant]
     Active Substance: POTASSIUM CHLORIDE
  54. HEPARIN (PORCINE) [Concomitant]

REACTIONS (11)
  - Pneumonia [None]
  - Pleural effusion [None]
  - Troponin increased [None]
  - Hypotension [None]
  - Cardiomyopathy [None]
  - White blood cell count decreased [None]
  - Pulmonary oedema [None]
  - Injury [None]
  - Hyperglycaemia [None]
  - Acidosis [None]
  - General physical health deterioration [None]

NARRATIVE: CASE EVENT DATE: 20141028
